FAERS Safety Report 10141571 (Version 2)
Quarter: 2014Q2

REPORT INFORMATION
  Report Type: Spontaneous
  Country: FR (occurrence: FR)
  Receive Date: 20140429
  Receipt Date: 20140513
  Transmission Date: 20141212
  Serious: Yes (Other)
  Sender: FDA-Public Use
  Company Number: FR-GLAXOSMITHKLINE-B0988477A

PATIENT
  Age: 70 Year
  Sex: Male
  Weight: 63.5 kg

DRUGS (5)
  1. COMBODART [Suspect]
     Indication: BENIGN PROSTATIC HYPERPLASIA
     Route: 065
     Dates: start: 20131003, end: 20131031
  2. AVODART [Suspect]
     Indication: BENIGN PROSTATIC HYPERPLASIA
     Route: 065
     Dates: end: 201309
  3. TAMSULOSINE [Concomitant]
     Indication: BENIGN PROSTATIC HYPERPLASIA
     Route: 065
     Dates: end: 201309
  4. DERMOVAL [Concomitant]
     Indication: PRODUCT USED FOR UNKNOWN INDICATION
     Route: 065
     Dates: start: 201309
  5. LIPANTHYL [Concomitant]
     Indication: DYSLIPIDAEMIA
     Dosage: 200MG PER DAY
     Route: 048
     Dates: start: 1982

REACTIONS (4)
  - Eczema [Not Recovered/Not Resolved]
  - Lymphangitis [Not Recovered/Not Resolved]
  - Wound infection [Not Recovered/Not Resolved]
  - Drug administration error [Unknown]
